FAERS Safety Report 9686496 (Version 1)
Quarter: 2013Q4

REPORT INFORMATION
  Report Type: Spontaneous
  Country: JP (occurrence: None)
  Receive Date: 20131108
  Receipt Date: 20131108
  Transmission Date: 20140711
  Serious: Yes (Death, Hospitalization, Other)
  Sender: FDA-Public Use
  Company Number: 7246504

PATIENT
  Age: 49 Year
  Sex: Male

DRUGS (3)
  1. LEVOTHYROXINE [Suspect]
     Indication: HYPOTHYROIDISM
  2. SUNITINIB [Suspect]
     Indication: METASTATIC RENAL CELL CARCINOMA
     Dosage: 50 MG (4 WEEK-ON, 2 WEEK-OFF SCHEDULE)
     Route: 048
     Dates: start: 200808
  3. AMLODIPINE BESYLATE (AMLODIPINE BESILATE) (AMLODIPINE BESILATE) [Concomitant]

REACTIONS (17)
  - Metastatic renal cell carcinoma [None]
  - Malignant neoplasm progression [None]
  - Diabetic nephropathy [None]
  - Condition aggravated [None]
  - Intercapillary glomerulosclerosis [None]
  - Hypercalcaemia [None]
  - Oedema [None]
  - Hypertension [None]
  - Hypothyroidism [None]
  - Weight increased [None]
  - Anaemia [None]
  - Blood cholesterol increased [None]
  - Blood albumin decreased [None]
  - Blood glucose increased [None]
  - Nephrotic syndrome [None]
  - Drug resistance [None]
  - Dialysis [None]
